FAERS Safety Report 11103975 (Version 1)
Quarter: 2015Q2

REPORT INFORMATION
  Report Type: Spontaneous
  Country: US (occurrence: US)
  Receive Date: 20150511
  Receipt Date: 20150511
  Transmission Date: 20150821
  Serious: Yes (Other)
  Sender: FDA-Public Use
  Company Number: PHHY2015US055685

PATIENT
  Sex: Male

DRUGS (2)
  1. BACLOFEN INTRATHECAL [Suspect]
     Active Substance: BACLOFEN
     Indication: MUSCLE SPASTICITY
     Dosage: 457.9 UG, PER DAY
     Route: 037
  2. PRAMIPEXOLE [Suspect]
     Active Substance: PRAMIPEXOLE
     Indication: CLONUS
     Dosage: UNK
     Route: 065

REACTIONS (8)
  - Swelling [Unknown]
  - Staphylococcal infection [Recovered/Resolved]
  - Contusion [Unknown]
  - Muscle tightness [Unknown]
  - Hypertonia [Unknown]
  - Urinary incontinence [Unknown]
  - Clonus [Unknown]
  - Wound [Unknown]

NARRATIVE: CASE EVENT DATE: 2014
